FAERS Safety Report 9377069 (Version 1)
Quarter: 2013Q3

REPORT INFORMATION
  Report Type: Report from Study
  Country: ZA (occurrence: ZA)
  Receive Date: 20130701
  Receipt Date: 20130701
  Transmission Date: 20140515
  Serious: Yes (Hospitalization)
  Sender: FDA-Public Use
  Company Number: ZA-SANOFI-AVENTIS-200311775GDDC

PATIENT
  Age: 41 Year
  Sex: Female
  Weight: 83 kg

DRUGS (11)
  1. DOCETAXEL [Suspect]
     Indication: BREAST CANCER
     Route: 042
     Dates: start: 20030124, end: 20030124
  2. CYCLOPHOSPHAMIDE [Suspect]
     Indication: BREAST CANCER
     Route: 042
  3. DOXORUBICIN [Suspect]
     Indication: BREAST CANCER
     Route: 042
  4. DECADRON [Concomitant]
     Route: 048
     Dates: start: 20030123, end: 20030123
  5. DECADRON [Concomitant]
     Route: 048
     Dates: start: 20030124, end: 20030125
  6. DECADRON [Concomitant]
     Route: 042
     Dates: start: 20030124, end: 20030125
  7. PROMETHAZINE [Concomitant]
     Route: 042
     Dates: start: 20030124, end: 20030124
  8. ONDANSETRON [Concomitant]
     Route: 042
     Dates: start: 20030124, end: 20030124
  9. RANITIDINE [Concomitant]
     Route: 042
     Dates: start: 20030124, end: 20030124
  10. RANITIDINE [Concomitant]
     Route: 048
     Dates: start: 20030124, end: 20030130
  11. MAINTELYT [Concomitant]
     Route: 042
     Dates: start: 20030124, end: 20030124

REACTIONS (1)
  - Depression [Recovered/Resolved with Sequelae]
